FAERS Safety Report 5015118-2 (Version None)
Quarter: 2006Q2

REPORT INFORMATION
  Report Type: 
  Country: None (occurrence: None)
  Receive Date: 20060530
  Receipt Date: 20060516
  Transmission Date: 20061013
  Serious: Yes (Other)
  Sender: FDA-Public Use
  Company Number: DEU-2006-0002218

PATIENT
  Age: 67 Year
  Sex: Male

DRUGS (3)
  1. OXYGESIC [Suspect]
     Indication: PAIN
     Dosage: 15 MG, BID, ORAL
     Route: 048
     Dates: start: 20051207, end: 20060110
  2. METFORMIN [Concomitant]
  3. RAMIPRIL [Concomitant]

REACTIONS (4)
  - CONSTIPATION [None]
  - DYSGEUSIA [None]
  - FATIGUE [None]
  - SUICIDAL IDEATION [None]
